FAERS Safety Report 22045334 (Version 5)
Quarter: 2024Q3

REPORT INFORMATION
  Report Type: Report from Study
  Country: FR (occurrence: FR)
  Receive Date: 20230228
  Receipt Date: 20240822
  Transmission Date: 20241017
  Serious: Yes (Other)
  Sender: ABBVIE
  Company Number: FR-ABBVIE-21K-056-4094495-00

PATIENT
  Age: 79 Year
  Sex: Male
  Weight: 55 kg

DRUGS (26)
  1. VENETOCLAX [Suspect]
     Active Substance: VENETOCLAX
     Indication: Chronic lymphocytic leukaemia
     Dosage: 50 MILLIGRAM
     Route: 048
     Dates: start: 20200323, end: 20200329
  2. VENETOCLAX [Suspect]
     Active Substance: VENETOCLAX
     Indication: Chronic lymphocytic leukaemia
     Dosage: 100 MILLIGRAM
     Route: 048
     Dates: start: 20200330, end: 20200405
  3. VENETOCLAX [Suspect]
     Active Substance: VENETOCLAX
     Indication: Chronic lymphocytic leukaemia
     Dosage: 200 MILLIGRAM
     Route: 048
     Dates: start: 20200406, end: 20200413
  4. VENETOCLAX [Suspect]
     Active Substance: VENETOCLAX
     Indication: Chronic lymphocytic leukaemia
     Dosage: 400 MILLIGRAM
     Route: 048
     Dates: start: 20200414, end: 20200417
  5. VENETOCLAX [Suspect]
     Active Substance: VENETOCLAX
     Indication: Chronic lymphocytic leukaemia
     Dosage: 20 MILLIGRAM
     Route: 048
     Dates: start: 20200316, end: 20200322
  6. VENETOCLAX [Suspect]
     Active Substance: VENETOCLAX
     Indication: Chronic lymphocytic leukaemia
     Dosage: 400 MILLIGRAM
     Route: 048
     Dates: start: 20200428, end: 20220613
  7. RITUXIMAB [Concomitant]
     Active Substance: RITUXIMAB
     Indication: Chronic lymphocytic leukaemia
     Dates: start: 20200507, end: 20200928
  8. VALACYCLOVIR HYDROCHLORIDE [Concomitant]
     Active Substance: VALACYCLOVIR HYDROCHLORIDE
     Indication: Infection prophylaxis
     Dates: start: 20151008, end: 20220426
  9. PENTACARINAT [Concomitant]
     Active Substance: PENTAMIDINE ISETHIONATE
     Indication: Infection prophylaxis
     Dates: start: 20160705, end: 20220906
  10. NITROGLYCERIN [Concomitant]
     Active Substance: NITROGLYCERIN
     Indication: Vasodilatation
     Dates: start: 20210802, end: 20210831
  11. PENICILLIN V [Concomitant]
     Active Substance: PENICILLIN V
     Indication: Prophylaxis
     Dosage: 1000000 IU
     Dates: start: 20211029
  12. PRISTINAMYCIN [Concomitant]
     Active Substance: PRISTINAMYCIN
     Indication: Antibiotic therapy
     Dates: start: 20220924, end: 20221005
  13. CARBOSYMAG [Concomitant]
     Indication: Dyspepsia
     Dates: start: 20210802, end: 20210831
  14. CARBOSYMAG [Concomitant]
     Indication: Dyspepsia
     Dates: start: 20210802, end: 20210831
  15. AMOXICILLIN [Concomitant]
     Active Substance: AMOXICILLIN
     Indication: Antibiotic therapy
     Dates: start: 20211020, end: 20211028
  16. AMOXICILLIN [Concomitant]
     Active Substance: AMOXICILLIN
     Indication: Antibiotic therapy
     Dates: start: 20211020, end: 20211028
  17. AMOXICILLIN [Concomitant]
     Active Substance: AMOXICILLIN
     Indication: Antibiotic therapy
     Dates: start: 20221005, end: 20221015
  18. AMOXICILLIN [Concomitant]
     Active Substance: AMOXICILLIN
     Indication: Antibiotic therapy
     Dates: start: 20221005, end: 20221015
  19. ROXITHROMYCIN [Concomitant]
     Active Substance: ROXITHROMYCIN
     Indication: Antibiotic therapy
     Dates: start: 20221004, end: 20221014
  20. COVID-19 vaccine [Concomitant]
     Indication: COVID-19 prophylaxis
     Dosage: ANTI-COVID VACCINES
     Dates: start: 20210202, end: 202105
  21. AUGMENTIN [Concomitant]
     Active Substance: AMOXICILLIN\CLAVULANATE POTASSIUM
     Indication: Antibiotic therapy
     Dosage: 3 GRAM
     Dates: start: 20220810, end: 20220818
  22. AUGMENTIN [Concomitant]
     Active Substance: AMOXICILLIN\CLAVULANATE POTASSIUM
     Indication: Antibiotic therapy
     Dosage: 3 GRAM
     Dates: start: 20220810, end: 20220818
  23. AUGMENTIN [Concomitant]
     Active Substance: AMOXICILLIN\CLAVULANATE POTASSIUM
     Indication: Antibiotic therapy
     Dates: start: 20220901, end: 20220910
  24. AUGMENTIN [Concomitant]
     Active Substance: AMOXICILLIN\CLAVULANATE POTASSIUM
     Indication: Antibiotic therapy
     Dates: start: 20220901, end: 20220910
  25. LOXEN [Concomitant]
     Indication: Blood pressure management
     Dates: start: 20220104, end: 202204
  26. LOXEN [Concomitant]
     Indication: Blood pressure management
     Dates: start: 20220104, end: 202204

REACTIONS (28)
  - COVID-19 pneumonia [Recovered/Resolved]
  - Lymphopenia [Recovered/Resolved]
  - Hyperuricaemia [Recovered/Resolved]
  - Tumour lysis syndrome [Recovered/Resolved]
  - Blood lactate dehydrogenase increased [Recovered/Resolved]
  - Thrombocytopenia [Recovered/Resolved]
  - Hypokalaemia [Recovered/Resolved]
  - Lymphopenia [Recovered/Resolved]
  - Pulmonary mass [Recovered/Resolved]
  - Chills [Recovered/Resolved]
  - COVID-19 [Recovered/Resolved]
  - Hyperthermia [Recovered/Resolved]
  - Thrombocytopenia [Not Recovered/Not Resolved]
  - Influenza like illness [Recovered/Resolved]
  - Inflammatory marker increased [Recovered/Resolved]
  - Haptoglobin decreased [Recovered/Resolved]
  - Lymphocytosis [Not Recovered/Not Resolved]
  - Neutrophil count increased [Recovered/Resolved]
  - Hypogammaglobulinaemia [Recovered/Resolved]
  - Hypogammaglobulinaemia [Recovered/Resolved]
  - Hyperleukocytosis [Not Recovered/Not Resolved]
  - Blood lactate dehydrogenase increased [Not Recovered/Not Resolved]
  - C-reactive protein increased [Recovered/Resolved]
  - Haemophilus infection [Recovered/Resolved]
  - Hyperphosphataemia [Recovered/Resolved]
  - Neutropenia [Recovered/Resolved]
  - Hyperthermia [Recovered/Resolved]
  - Chills [Recovered/Resolved]

NARRATIVE: CASE EVENT DATE: 20200330
